FAERS Safety Report 16575307 (Version 1)
Quarter: 2019Q3

REPORT INFORMATION
  Report Type: Other
  Country: AT (occurrence: AT)
  Receive Date: 20190716
  Receipt Date: 20190716
  Transmission Date: 20191004
  Serious: Yes (Hospitalization)
  Sender: FDA-Public Use
  Company Number: AT-CELLTRION INC.-2019AT022538

PATIENT

DRUGS (6)
  1. PERTUZUMAB. [Suspect]
     Active Substance: PERTUZUMAB
     Indication: HER-2 POSITIVE BREAST CANCER
     Dosage: 840 MG, 3 WEEKS, MOST RECENT DOSE PRIOR TO THE EVENT: 16 OCT 2018
     Route: 042
     Dates: start: 20180918
  2. TYKERB [Suspect]
     Active Substance: LAPATINIB DITOSYLATE
     Indication: HER-2 POSITIVE BREAST CANCER
     Dosage: 250 MG, DAILY
     Route: 048
     Dates: start: 20190311
  3. NAVELBINE [Suspect]
     Active Substance: VINORELBINE TARTRATE
     Indication: HER-2 POSITIVE BREAST CANCER
     Dosage: 50 MG, MOST RECENT DOSE ON 07 JAN 2019
     Route: 048
     Dates: start: 20181016
  4. CAPECITABINE. [Suspect]
     Active Substance: CAPECITABINE
     Indication: HER-2 POSITIVE BREAST CANCER
     Dosage: 2000 MG/M2, OTHER
     Route: 048
     Dates: start: 20190311
  5. TRASTUZUMAB EMTANSINE [Suspect]
     Active Substance: ADO-TRASTUZUMAB EMTANSINE
     Indication: HER-2 POSITIVE BREAST CANCER
     Dosage: 3.6 MG/KG, 3 WEEKS, MOST RECENT DOSE 28/JAN/2019
     Route: 042
     Dates: start: 20190107
  6. TRASTUZUMAB (UNKNOWN) [Suspect]
     Active Substance: TRASTUZUMAB
     Indication: HER-2 POSITIVE BREAST CANCER
     Dosage: 8 MG/KG, 3 WEEK, MOST RECENT DOSE PRIOR TO THE EVENT: 16 OCT 2018
     Route: 042
     Dates: start: 20180918, end: 20181016

REACTIONS (1)
  - General physical health deterioration [Recovering/Resolving]

NARRATIVE: CASE EVENT DATE: 20190606
